FAERS Safety Report 15351707 (Version 1)
Quarter: 2018Q4

REPORT INFORMATION
  Report Type: Spontaneous
  Country: JP (occurrence: JP)
  Receive Date: 20180905
  Receipt Date: 20180905
  Transmission Date: 20190204
  Serious: Yes (Hospitalization)
  Sender: FDA-Public Use
  Company Number: JP-MYLANLABS-2018M1064125

PATIENT

DRUGS (1)
  1. TACROLIMUS CAPSULE? 1MG ?PFIZER? [Suspect]
     Active Substance: TACROLIMUS
     Indication: RHEUMATOID ARTHRITIS
     Route: 065

REACTIONS (3)
  - Product substitution issue [Unknown]
  - Decreased appetite [Unknown]
  - Weight decreased [Unknown]
